FAERS Safety Report 11300312 (Version 1)
Quarter: 2015Q3

REPORT INFORMATION
  Report Type: Spontaneous
  Country: US (occurrence: US)
  Receive Date: 20150722
  Receipt Date: 20150722
  Transmission Date: 20151125
  Serious: No
  Sender: FDA-Public Use
  Company Number: US-ELI_LILLY_AND_COMPANY-US201309001055

PATIENT
  Sex: Male

DRUGS (1)
  1. HUMATROPE [Suspect]
     Active Substance: SOMATROPIN
     Dosage: UNK, UNKNOWN
     Route: 065

REACTIONS (5)
  - Eructation [Recovered/Resolved]
  - Accidental overdose [Unknown]
  - Dyspepsia [Recovered/Resolved]
  - Oesophageal discomfort [Unknown]
  - Weight increased [Unknown]
